FAERS Safety Report 22230070 (Version 1)
Quarter: 2023Q2

REPORT INFORMATION
  Report Type: Spontaneous
  Country: BG (occurrence: BG)
  Receive Date: 20230419
  Receipt Date: 20230419
  Transmission Date: 20230722
  Serious: Yes (Other)
  Sender: FDA-Public Use
  Company Number: None

PATIENT
  Age: 11 Year
  Sex: Female

DRUGS (4)
  1. GENTAMICIN [Suspect]
     Active Substance: GENTAMICIN
     Indication: Endocarditis bacterial
     Route: 065
     Dates: start: 201405, end: 2014
  2. CEFUROXIME [Suspect]
     Active Substance: CEFUROXIME
     Indication: Endocarditis bacterial
     Route: 065
     Dates: start: 201405, end: 2014
  3. AMIKACIN [Suspect]
     Active Substance: AMIKACIN
     Indication: Endocarditis bacterial
     Route: 065
     Dates: start: 201405, end: 2014
  4. IBUPROFEN [Concomitant]
     Active Substance: IBUPROFEN
     Indication: Arthritis bacterial
     Dates: start: 201405, end: 2014

REACTIONS (1)
  - Leukopenia [Recovered/Resolved]

NARRATIVE: CASE EVENT DATE: 20140101
